FAERS Safety Report 7278096-1 (Version None)
Quarter: 2010Q4

REPORT INFORMATION
  Report Type: 
  Country: None (occurrence: None)
  Receive Date: 20101215
  Receipt Date: 20100804
  Transmission Date: 20110411
  Serious: Yes (Other)
  Sender: FDA-Public Use
  Company Number: DSA_42425_2010

PATIENT
  Sex: Female

DRUGS (6)
  1. XENAZINE [Suspect]
     Indication: TARDIVE DYSKINESIA
     Dosage: (12.5 MG QD), (12.5 MG TID)
     Dates: start: 20100101, end: 20100120
  2. XENAZINE [Suspect]
     Indication: TARDIVE DYSKINESIA
     Dosage: (12.5 MG QD), (12.5 MG TID)
     Dates: start: 20091201
  3. CELEXA [Concomitant]
  4. LORAZEPAM [Concomitant]
  5. TRILEPTAL [Concomitant]
  6. TRAMADOL HCL [Concomitant]

REACTIONS (2)
  - CONDITION AGGRAVATED [None]
  - DEPRESSION [None]
